FAERS Safety Report 4793417-7 (Version None)
Quarter: 2005Q4

REPORT INFORMATION
  Report Type: 
  Country: None (occurrence: None)
  Receive Date: 20051006
  Receipt Date: 20050928
  Transmission Date: 20060501
  Serious: Yes (Other)
  Sender: FDA-Public Use
  Company Number: 2002057211

PATIENT
  Age: 60 Year
  Sex: Male
  Weight: 92.9874 kg

DRUGS (7)
  1. NEURONTIN [Suspect]
     Indication: NEURALGIA
     Dosage: 2400 MG, ORAL
     Route: 048
     Dates: start: 20020501
  2. DARVOCET [Suspect]
     Indication: ILL-DEFINED DISORDER
     Dosage: ORAL
     Route: 048
  3. ULTRAM [Suspect]
     Indication: ILL-DEFINED DISORDER
  4. WELLBUTRIN [Suspect]
     Indication: DEPRESSION
     Dosage: (DAILY)
     Dates: end: 20050101
  5. CLONOPIN (CLONAZEPAM) [Concomitant]
  6. VIOXX [Concomitant]
  7. VOLTAREN [Concomitant]

REACTIONS (31)
  - ASTHENIA [None]
  - BACK PAIN [None]
  - BALANCE DISORDER [None]
  - CHONDROPATHY [None]
  - CONTUSION [None]
  - DEMYELINATION [None]
  - DEPENDENCE [None]
  - DEPRESSED LEVEL OF CONSCIOUSNESS [None]
  - DIFFICULTY IN WALKING [None]
  - DRUG INEFFECTIVE [None]
  - DRUG WITHDRAWAL SYNDROME [None]
  - FALL [None]
  - FATIGUE [None]
  - FEELING ABNORMAL [None]
  - FLUID RETENTION [None]
  - GINGIVAL RECESSION [None]
  - HANGOVER [None]
  - HEADACHE [None]
  - INCORRECT DOSE ADMINISTERED [None]
  - INSOMNIA [None]
  - MIGRAINE [None]
  - MUSCLE DISORDER [None]
  - MUSCLE TIGHTNESS [None]
  - MUSCULAR WEAKNESS [None]
  - MUSCULOSKELETAL CHEST PAIN [None]
  - NAUSEA [None]
  - REFUSAL OF TREATMENT BY PATIENT [None]
  - SOMATOFORM DISORDER [None]
  - SWELLING [None]
  - TREMOR [None]
  - WEIGHT INCREASED [None]
